FAERS Safety Report 12612907 (Version 1)
Quarter: 2016Q3

REPORT INFORMATION
  Report Type: Spontaneous
  Country: US (occurrence: US)
  Receive Date: 20160802
  Receipt Date: 20160802
  Transmission Date: 20161109
  Serious: No
  Sender: FDA-Public Use
  Company Number: US-BRISTOL-MYERS SQUIBB COMPANY-BMS-2016-062613

PATIENT
  Sex: Female

DRUGS (5)
  1. ARIPIPRAZOLE TEVA [Suspect]
     Active Substance: ARIPIPRAZOLE
     Indication: AUTISM
     Dosage: 5 MG, QD
     Route: 048
  2. ABILIFY [Suspect]
     Active Substance: ARIPIPRAZOLE
     Indication: AUTISM
     Dosage: 5 MG, QD
     Route: 048
     Dates: start: 201309
  3. FOCALIN [Suspect]
     Active Substance: DEXMETHYLPHENIDATE HYDROCHLORIDE
     Indication: ATTENTION DEFICIT/HYPERACTIVITY DISORDER
     Dosage: UNK
     Route: 065
  4. TENEX [Concomitant]
     Active Substance: GUANFACINE HYDROCHLORIDE
     Indication: PRODUCT USED FOR UNKNOWN INDICATION
     Route: 065
  5. ARIPIPRAZOLE TEVA [Suspect]
     Active Substance: ARIPIPRAZOLE
     Dosage: 10 MG,QD
     Route: 048

REACTIONS (6)
  - Hunger [Unknown]
  - Increased appetite [Unknown]
  - Nightmare [Not Recovered/Not Resolved]
  - Disturbance in attention [Unknown]
  - Weight increased [Unknown]
  - Irritability [Unknown]
